FAERS Safety Report 23757609 (Version 4)
Quarter: 2024Q2

REPORT INFORMATION
  Report Type: Report from Study
  Country: US (occurrence: US)
  Receive Date: 20240418
  Receipt Date: 20240618
  Transmission Date: 20240715
  Serious: Yes (Other)
  Sender: FDA-Public Use
  Company Number: US-JNJFOC-20240388892

PATIENT
  Age: 83 Year
  Sex: Female

DRUGS (7)
  1. STELARA [Suspect]
     Active Substance: USTEKINUMAB
     Indication: Crohn^s disease
     Route: 058
     Dates: start: 202401
  2. STELARA [Suspect]
     Active Substance: USTEKINUMAB
     Route: 058
     Dates: start: 2023
  3. LISINOPRIL [Concomitant]
     Active Substance: LISINOPRIL
     Indication: Hypertension
  4. ATORVASTATIN [Concomitant]
     Active Substance: ATORVASTATIN
     Indication: Blood cholesterol
  5. ALBUTEROL [Concomitant]
     Active Substance: ALBUTEROL
     Indication: Dyspnoea
  6. ASPIRIN [Concomitant]
     Active Substance: ASPIRIN
  7. MOMETASONE [Concomitant]
     Active Substance: MOMETASONE

REACTIONS (4)
  - Crohn^s disease [Unknown]
  - Needle issue [Unknown]
  - Product dose omission issue [Unknown]
  - Surgery [Unknown]

NARRATIVE: CASE EVENT DATE: 20240326
